FAERS Safety Report 15657564 (Version 1)
Quarter: 2018Q4

REPORT INFORMATION
  Report Type: Spontaneous
  Country: ID (occurrence: ID)
  Receive Date: 20181126
  Receipt Date: 20181126
  Transmission Date: 20190205
  Serious: Yes (Hospitalization, Other)
  Sender: FDA-Public Use
  Company Number: ID-JNJFOC-20181129396

PATIENT
  Age: 36 Year
  Sex: Female
  Weight: 46 kg

DRUGS (15)
  1. SUCRALFATE. [Concomitant]
     Active Substance: SUCRALFATE
     Indication: NAUSEA
     Route: 048
     Dates: start: 20181014, end: 20181017
  2. LFX [Suspect]
     Active Substance: LEVOFLOXACIN
     Indication: TUBERCULOSIS
     Route: 048
     Dates: start: 20180508
  3. CYCLOSERINE. [Suspect]
     Active Substance: CYCLOSERINE
     Indication: TUBERCULOSIS
     Route: 065
  4. SUCRALFATE. [Concomitant]
     Active Substance: SUCRALFATE
     Indication: VOMITING
     Route: 048
     Dates: start: 20181014, end: 20181017
  5. CLOFAZIMINE [Suspect]
     Active Substance: CLOFAZIMINE
     Indication: TUBERCULOSIS
     Route: 048
     Dates: start: 20180708
  6. ETHIONAMIDE [Suspect]
     Active Substance: ETHIONAMIDE
     Indication: TUBERCULOSIS
     Route: 065
  7. AMBROXOL [Concomitant]
     Active Substance: AMBROXOL
     Indication: PRODUCTIVE COUGH
     Route: 048
     Dates: start: 20181014, end: 20181017
  8. LANSOPRAZOLE. [Concomitant]
     Active Substance: LANSOPRAZOLE
     Indication: VOMITING
     Route: 048
     Dates: start: 20181014, end: 20181017
  9. PYRAZINAMIDE. [Suspect]
     Active Substance: PYRAZINAMIDE
     Indication: TUBERCULOSIS
     Route: 048
     Dates: start: 20180508
  10. SIRTURO [Suspect]
     Active Substance: BEDAQUILINE FUMARATE
     Indication: TUBERCULOSIS
     Route: 048
     Dates: start: 20180522
  11. ETHAMBUTOL [Suspect]
     Active Substance: ETHAMBUTOL HYDROCHLORIDE
     Indication: TUBERCULOSIS
     Route: 065
  12. RANITIDINE. [Concomitant]
     Active Substance: RANITIDINE
     Indication: VOMITING
     Route: 042
     Dates: start: 20181014, end: 20181017
  13. LINEZOLID. [Suspect]
     Active Substance: LINEZOLID
     Indication: TUBERCULOSIS
     Route: 048
     Dates: start: 20180808
  14. RANITIDINE. [Concomitant]
     Active Substance: RANITIDINE
     Indication: NAUSEA
     Route: 042
     Dates: start: 20181014, end: 20181017
  15. LANSOPRAZOLE. [Concomitant]
     Active Substance: LANSOPRAZOLE
     Indication: NAUSEA
     Route: 048
     Dates: start: 20181014, end: 20181017

REACTIONS (4)
  - Vomiting [Recovered/Resolved]
  - Nausea [Unknown]
  - Insomnia [Unknown]
  - Anaemia [Recovered/Resolved]

NARRATIVE: CASE EVENT DATE: 2018
